FAERS Safety Report 10248286 (Version 1)
Quarter: 2014Q2

REPORT INFORMATION
  Report Type: Spontaneous
  Country: US (occurrence: US)
  Receive Date: 20140620
  Receipt Date: 20140620
  Transmission Date: 20141212
  Serious: Yes (Hospitalization)
  Sender: FDA-Public Use
  Company Number: US-JNJCP-30000223951

PATIENT
  Sex: Female
  Weight: 104 kg

DRUGS (7)
  1. ROC RETINOL CORREXION DEEP WRINKLE NIGHT CREAM [Suspect]
     Indication: SKIN WRINKLING
     Dosage: DIME SIZE ONCE DAILY
     Route: 061
     Dates: start: 20140523, end: 20140530
  2. LORAZEPAM [Concomitant]
     Indication: ANXIETY
     Dosage: ONCE DAILY SINCE COUPLE OF YEARS
  3. MEPROBAMATE [Concomitant]
     Indication: ANXIETY
     Dosage: ONCE DAILY SINCE COUPLE OF YEARS
  4. REQUIP [Concomitant]
     Indication: RESTLESS LEGS SYNDROME
     Dosage: ONCE DAILY SINCE COUPLE OF YEARS
  5. ROC RETINOL CORREXION DEEP WRINKLE SERUM [Suspect]
     Indication: SKIN WRINKLING
     Dosage: DIME SIZE TWICE DAILY
     Route: 061
     Dates: start: 20140523, end: 20140530
  6. ROC RETINOL CORREXION DEEP WRINKLE DAILY MOISTURIZER SPF30 [Suspect]
     Indication: SKIN WRINKLING
     Dosage: DIME SIZE ONCE DAILY
     Route: 061
     Dates: start: 20140523, end: 20140530
  7. ROC RETINOL CORREXION DEEP WRINKLE FILLER [Suspect]
     Indication: SKIN WRINKLING
     Dosage: DIME SIZE TWICE DAILY
     Route: 061
     Dates: start: 20140523, end: 20140530

REACTIONS (3)
  - Application site papules [Recovering/Resolving]
  - Dyspnoea [Recovering/Resolving]
  - Swollen tongue [Recovering/Resolving]
